FAERS Safety Report 4609158-2 (Version None)
Quarter: 2005Q1

REPORT INFORMATION
  Report Type: 
  Country: None (occurrence: None)
  Receive Date: 20050311
  Receipt Date: 20050303
  Transmission Date: 20050727
  Serious: Yes (Hospitalization, Other)
  Sender: FDA-Public Use
  Company Number: 2005040440

PATIENT
  Age: 14 Year
  Sex: Male

DRUGS (3)
  1. NEURONTIN [Suspect]
     Indication: BIPOLAR DISORDER
     Dosage: 400 MG (100 MG, 4 IN 1 D), ORAL
     Route: 048
     Dates: start: 20041101, end: 20050101
  2. RISPERDAL [Concomitant]
  3. CLONIDINE [Concomitant]

REACTIONS (4)
  - BIPOLAR DISORDER [None]
  - EPILEPSY [None]
  - MEDICATION ERROR [None]
  - PHARMACEUTICAL PRODUCT COMPLAINT [None]
